FAERS Safety Report 14878335 (Version 1)
Quarter: 2018Q2

REPORT INFORMATION
  Report Type: Spontaneous
  Country: US (occurrence: US)
  Receive Date: 20180511
  Receipt Date: 20180511
  Transmission Date: 20180711
  Serious: No
  Sender: FDA-Public Use
  Company Number: US-BAUSCH-BL-2017-028587

PATIENT
  Sex: Female
  Weight: 53.57 kg

DRUGS (1)
  1. LATANOPROST OPHTHALMIC SOLUTION 0.005% [Suspect]
     Active Substance: LATANOPROST
     Indication: INTRAOCULAR PRESSURE INCREASED
     Dosage: ONE DROP IN EACH EYE EVERY EVENING
     Route: 047
     Dates: start: 2016, end: 20170929

REACTIONS (2)
  - Madarosis [Not Recovered/Not Resolved]
  - Trichomegaly [Not Recovered/Not Resolved]

NARRATIVE: CASE EVENT DATE: 201707
